FAERS Safety Report 4469559-2 (Version None)
Quarter: 2004Q4

REPORT INFORMATION
  Report Type: 
  Country: None (occurrence: None)
  Receive Date: 20041005
  Receipt Date: 20041005
  Transmission Date: 20050328
  Serious: No
  Sender: FDA-Public Use
  Company Number: None

PATIENT
  Age: 65 Year
  Sex: Male
  Weight: 65.7716 kg

DRUGS (1)
  1. PROPECIA [Suspect]
     Indication: ALOPECIA AREATA
     Dosage: OD   ORAL
     Route: 048

REACTIONS (1)
  - ANGINA PECTORIS [None]
